FAERS Safety Report 8513870-2 (Version None)
Quarter: 2012Q3

REPORT INFORMATION
  Report Type: 
  Country: None (occurrence: None)
  Receive Date: 20120705
  Receipt Date: 20120622
  Transmission Date: 20120928
  Serious: Yes (Disabling)
  Sender: FDA-Public Use
  Company Number: 2012SP035445

PATIENT
  Age: 14 Year
  Sex: Female

DRUGS (2)
  1. POSACONAZOLE [Suspect]
     Indication: FUNGAL INFECTION
     Dosage: 400 MG;BID;PO
     Route: 048
  2. AMPHOTERICIN B [Concomitant]

REACTIONS (3)
  - LEG AMPUTATION [None]
  - FUNGAL INFECTION [None]
  - CONDITION AGGRAVATED [None]
